FAERS Safety Report 6189905-1 (Version None)
Quarter: 2009Q2

REPORT INFORMATION
  Report Type: 
  Country: None (occurrence: None)
  Receive Date: 20090514
  Receipt Date: 20070517
  Transmission Date: 20091009
  Serious: Yes (Other)
  Sender: FDA-Public Use
  Company Number: US-ASTRAZENECA-2006UW21246

PATIENT
  Age: 18817 Day
  Sex: Female
  Weight: 83.5 kg

DRUGS (31)
  1. SEROQUEL [Suspect]
     Indication: DEPRESSION
     Dosage: 25-100 MG
     Route: 048
     Dates: start: 19980901, end: 20050801
  2. SEROQUEL [Suspect]
     Indication: MAJOR DEPRESSION
     Dosage: 25-100 MG
     Route: 048
     Dates: start: 19980901, end: 20050801
  3. SEROQUEL [Suspect]
     Indication: ANXIETY
     Dosage: 25-100 MG
     Route: 048
     Dates: start: 19980901, end: 20050801
  4. SEROQUEL [Suspect]
     Dosage: 25 MG TO 100 MG
     Route: 048
     Dates: start: 19990413, end: 20050314
  5. SEROQUEL [Suspect]
     Dosage: 25 MG TO 100 MG
     Route: 048
     Dates: start: 19990413, end: 20050314
  6. SEROQUEL [Suspect]
     Dosage: 25 MG TO 100 MG
     Route: 048
     Dates: start: 19990413, end: 20050314
  7. GEODON [Concomitant]
     Route: 048
     Dates: end: 20070319
  8. RISPERDAL [Concomitant]
     Route: 048
  9. ZYPREXA [Concomitant]
     Route: 048
  10. FLUOXETINE [Concomitant]
     Dosage: 20-80 MG
     Route: 048
  11. PROZAC [Concomitant]
     Dosage: 20-80 MG
     Route: 048
  12. STELAZINE [Concomitant]
     Route: 048
  13. ATUSS MS [Concomitant]
     Route: 048
  14. SMZ [Concomitant]
     Route: 048
  15. NAPROXEN [Concomitant]
     Route: 048
  16. CYCLOBENZAPR [Concomitant]
     Route: 048
  17. SKELAXIN [Concomitant]
     Route: 048
  18. ALLEGRA [Concomitant]
     Route: 048
  19. AMARYL [Concomitant]
     Route: 048
  20. HYDROCODONE BITARTRATE [Concomitant]
     Dosage: 5-50 MG
     Route: 048
  21. GLIMEPIRIDE [Concomitant]
     Route: 048
  22. SULINDAC [Concomitant]
     Route: 048
  23. TRAZODONE HCL [Concomitant]
     Route: 048
  24. JANUVIA [Concomitant]
     Route: 048
  25. XALATAN [Concomitant]
     Route: 065
  26. UROGESIC BLUE [Concomitant]
     Route: 048
  27. NASONEX [Concomitant]
     Route: 065
  28. VIVELLE [Concomitant]
     Route: 061
  29. COZAAR [Concomitant]
     Route: 048
  30. TORADOL [Concomitant]
     Route: 048
  31. HYDROTUSSIN [Concomitant]
     Route: 065

REACTIONS (27)
  - ABDOMINAL PAIN LOWER [None]
  - ALLERGIC SINUSITIS [None]
  - BACK PAIN [None]
  - BRONCHITIS VIRAL [None]
  - CANDIDIASIS [None]
  - CATARACT [None]
  - CHEST PAIN [None]
  - DIABETES MELLITUS [None]
  - DIABETIC NEUROPATHY [None]
  - FUNGAL INFECTION [None]
  - GLAUCOMA [None]
  - GLYCOSURIA [None]
  - HYPERKERATOSIS [None]
  - LIBIDO DECREASED [None]
  - MUSCULOSKELETAL CHEST PAIN [None]
  - MUSCULOSKELETAL PAIN [None]
  - MYOPIA [None]
  - ONYCHOMYCOSIS [None]
  - PRESBYOPIA [None]
  - RHINITIS ALLERGIC [None]
  - SCIATICA [None]
  - SKIN LACERATION [None]
  - TENDONITIS [None]
  - TINEA PEDIS [None]
  - TOOTH ABSCESS [None]
  - URINARY TRACT INFECTION [None]
  - VULVOVAGINAL MYCOTIC INFECTION [None]
